FAERS Safety Report 15500010 (Version 1)
Quarter: 2018Q4

REPORT INFORMATION
  Report Type: Spontaneous
  Country: US (occurrence: US)
  Receive Date: 20181015
  Receipt Date: 20181015
  Transmission Date: 20190205
  Serious: No
  Sender: FDA-Public Use
  Company Number: US-UNIQUE PHARMACEUTICAL LABORATORIES-2018RIS00158

PATIENT
  Sex: Female

DRUGS (1)
  1. CETIRIZINE HYDROCHLORIDE. [Suspect]
     Active Substance: CETIRIZINE HYDROCHLORIDE
     Dosage: 10 MG, 1X/DAY
     Route: 048
     Dates: start: 20180321, end: 20180322

REACTIONS (4)
  - Stress [Unknown]
  - Panic reaction [Unknown]
  - Agitation [Unknown]
  - Accidental overdose [Recovered/Resolved]

NARRATIVE: CASE EVENT DATE: 20180322
